FAERS Safety Report 9596110 (Version 1)
Quarter: 2013Q4

REPORT INFORMATION
  Report Type: Spontaneous
  Country: US (occurrence: US)
  Receive Date: 20131004
  Receipt Date: 20131004
  Transmission Date: 20140711
  Serious: No
  Sender: FDA-Public Use
  Company Number: US-PFIZER INC-2013281771

PATIENT
  Age: 66 Year
  Sex: Female
  Weight: 50.8 kg

DRUGS (1)
  1. MOTRIN IB [Suspect]
     Dosage: UNK
     Route: 048

REACTIONS (2)
  - Rash [Recovered/Resolved]
  - Product quality issue [Recovered/Resolved]
